FAERS Safety Report 5176342-1 (Version None)
Quarter: 2006Q4

REPORT INFORMATION
  Report Type: 
  Country: None (occurrence: None)
  Receive Date: 20061128
  Receipt Date: 20061121
  Transmission Date: 20070319
  Serious: Yes (Other)
  Sender: FDA-Public Use
  Company Number: 2006BH014412

PATIENT
  Age: 42 Year
  Sex: Female

DRUGS (2)
  1. IMMUNE GLOBULIN INTRAVENOUS (HUMAN) [Suspect]
     Indication: HYPOGAMMAGLOBULINAEMIA
     Dosage: SEE IMAGE
     Route: 042
     Dates: start: 20061023, end: 20061023
  2. IMMUNE GLOBULIN INTRAVENOUS (HUMAN) [Suspect]

REACTIONS (6)
  - BLOOD PRESSURE IMMEASURABLE [None]
  - DIZZINESS [None]
  - PALLOR [None]
  - PYREXIA [None]
  - RESPIRATORY RATE INCREASED [None]
  - TACHYCARDIA [None]
